FAERS Safety Report 25537251 (Version 1)
Quarter: 2025Q3

REPORT INFORMATION
  Report Type: Spontaneous
  Country: US (occurrence: US)
  Receive Date: 20250710
  Receipt Date: 20250710
  Transmission Date: 20251021
  Serious: Yes (Hospitalization)
  Sender: ROCHE
  Company Number: US-ROCHE-10000330038

PATIENT
  Age: 27 Year

DRUGS (1)
  1. OCREVUS [Suspect]
     Active Substance: OCRELIZUMAB
     Indication: Multiple sclerosis
     Route: 065

REACTIONS (5)
  - Abdominal pain [Unknown]
  - Diarrhoea [Unknown]
  - Fatigue [Unknown]
  - Jaundice [Unknown]
  - Blood bilirubin increased [Unknown]
